FAERS Safety Report 19031125 (Version 1)
Quarter: 2021Q1

REPORT INFORMATION
  Report Type: Spontaneous
  Country: US (occurrence: US)
  Receive Date: 20210319
  Receipt Date: 20210319
  Transmission Date: 20210420
  Serious: No
  Sender: FDA-Public Use
  Company Number: US-ASTRAZENECA-2021A081214

PATIENT
  Sex: Female
  Weight: 65.8 kg

DRUGS (2)
  1. PULMICORT FLEXHALER [Suspect]
     Active Substance: BUDESONIDE
     Indication: ASTHMA
     Dosage: 90.0UG UNKNOWN
     Route: 055
  2. BUDESONIDE. [Suspect]
     Active Substance: BUDESONIDE
     Dosage: 5.0MG UNKNOWN
     Route: 055

REACTIONS (19)
  - Emotional distress [Unknown]
  - Fatigue [Unknown]
  - Immune system disorder [Unknown]
  - Fibrosis [Unknown]
  - Adverse event [Unknown]
  - Renal impairment [Unknown]
  - Hypersensitivity [Unknown]
  - Intentional dose omission [Unknown]
  - Abdominal discomfort [Unknown]
  - Sarcoidosis [Unknown]
  - Chills [Unknown]
  - Adverse drug reaction [Unknown]
  - Lung disorder [Unknown]
  - Product dose omission issue [Unknown]
  - Pyrexia [Unknown]
  - Upper respiratory tract infection [Unknown]
  - Rhinorrhoea [Unknown]
  - Asthenia [Unknown]
  - Product formulation issue [Unknown]
